FAERS Safety Report 25947907 (Version 1)
Quarter: 2025Q4

REPORT INFORMATION
  Report Type: Spontaneous
  Country: US (occurrence: US)
  Receive Date: 20251022
  Receipt Date: 20251022
  Transmission Date: 20260117
  Serious: Yes (Hospitalization)
  Sender: FRESENIUS MEDICAL CARE
  Company Number: US-FMCRTG-FMC-2509-001550

PATIENT
  Age: 62 Year
  Sex: Female
  Weight: 81.5 kg

DRUGS (2)
  1. DELFLEX WITH DEXTROSE 1.5% LOW MAGNESIUM LOW CALCIUM [Suspect]
     Active Substance: CALCIUM CHLORIDE\DEXTROSE\MAGNESIUM CHLORIDE\SODIUM CHLORIDE\SODIUM LACTATE
     Indication: End stage renal disease
     Dosage: 1.5% AND 2.5% DELFLEX AT 2500 ML FOR 4 CYCLES WITH A LAST FILL OF 2100 ML; PERTINENT PAST MEDICAL HI
     Route: 033
  2. DELFLEX WITH DEXTROSE 2.5% LOW MAGNESIUM LOW CALCIUM [Suspect]
     Active Substance: CALCIUM CHLORIDE\DEXTROSE\MAGNESIUM CHLORIDE\SODIUM CHLORIDE\SODIUM LACTATE
     Indication: End stage renal disease
     Dosage: 1.5% AND 2.5% DELFLEX AT 2500 ML FOR 4 CYCLES WITH A LAST FILL OF 2100 ML; PERTINENT PAST MEDICAL HI
     Route: 033

REACTIONS (2)
  - Hypervolaemia [Recovered/Resolved]
  - Treatment noncompliance [Unknown]
